FAERS Safety Report 4644433-7 (Version None)
Quarter: 2005Q2

REPORT INFORMATION
  Report Type: 
  Country: None (occurrence: None)
  Receive Date: 20050331
  Receipt Date: 20041202
  Transmission Date: 20051028
  Serious: No
  Sender: FDA-Public Use
  Company Number: 04P-163-0282341-00

PATIENT
  Age: 71 Year
  Sex: Female
  Weight: 45.3597 kg

DRUGS (3)
  1. HUMIRA [Suspect]
     Indication: RHEUMATOID ARTHRITIS
     Dosage: 40 MG, 1 IN 1 D, SUBCUTANEOUS
     Route: 058
     Dates: start: 20031230, end: 20041116
  2. LEVOTHYROXINE SODIUM [Concomitant]
  3. GLIPIZIDE [Concomitant]

REACTIONS (3)
  - BURNING SENSATION [None]
  - PHARYNGOLARYNGEAL PAIN [None]
  - VISUAL DISTURBANCE [None]
